FAERS Safety Report 9918733 (Version 2)
Quarter: 2014Q1

REPORT INFORMATION
  Report Type: Spontaneous
  Country: US (occurrence: US)
  Receive Date: 20140224
  Receipt Date: 20140314
  Transmission Date: 20141002
  Serious: No
  Sender: FDA-Public Use
  Company Number: US-009507513-1402USA000374

PATIENT
  Sex: Male

DRUGS (3)
  1. PEGINTRON [Suspect]
     Indication: HEPATITIS C
     Dosage: 150 MCG / ONCE WEEKLY ALSO REPORTED AS 0.5 CC ONCE A WEEK
     Route: 058
     Dates: start: 20140123
  2. REBETOL [Suspect]
     Indication: HEPATITIS C
     Dosage: 400 MG, BID (TWICE A DAY)
     Route: 048
     Dates: start: 20140123
  3. SOVALDI [Concomitant]
     Dosage: 400 MG, FREQUENCY: UNK

REACTIONS (8)
  - Injection site papule [Unknown]
  - Accidental exposure to product [Unknown]
  - Epistaxis [Unknown]
  - Headache [Unknown]
  - Fatigue [Unknown]
  - Dyspnoea [Unknown]
  - Injection site erythema [Unknown]
  - Injection site pruritus [Unknown]
